FAERS Safety Report 12893701 (Version 2)
Quarter: 2016Q4

REPORT INFORMATION
  Report Type: Spontaneous
  Country: NL (occurrence: NL)
  Receive Date: 20161028
  Receipt Date: 20161111
  Transmission Date: 20170207
  Serious: Yes (Other)
  Sender: FDA-Public Use
  Company Number: NL-GLAXOSMITHKLINE-NL2016GSK156855

PATIENT
  Age: 82 Year
  Sex: Male

DRUGS (9)
  1. CALCI CHEW D3 [Concomitant]
     Active Substance: CALCIUM CARBONATE\CHOLECALCIFEROL
     Dosage: 500 MG, QD
     Dates: start: 20040201
  2. DIPYRIDAMOL [Concomitant]
     Dosage: 200 MG, BID
     Dates: start: 20121010
  3. PANTOPRAZOL [Concomitant]
     Active Substance: PANTOPRAZOLE SODIUM
     Dosage: 20 MG, QD
     Dates: start: 20140922
  4. TAMSULOSINE [Concomitant]
     Active Substance: TAMSULOSIN HYDROCHLORIDE
     Dosage: 0.4 MG, QD
     Dates: start: 20001010
  5. QUINAPRIL AND HYDROCHLOROTHIAZIDE [Concomitant]
     Dosage: 22.5 MG, QD
     Dates: start: 20030504
  6. ACETYLSALICYLZUUR [Concomitant]
     Active Substance: ASPIRIN
     Dosage: 80 MG, QD
     Dates: start: 19980921
  7. AVODART [Suspect]
     Active Substance: DUTASTERIDE
     Indication: PROSTATIC DISORDER
     Dosage: 0.5 MG, QD
     Route: 048
     Dates: start: 20160509
  8. AMLODIPINE [Concomitant]
     Active Substance: AMLODIPINE BESYLATE
     Dosage: 5 MG, QD
     Dates: start: 20110329
  9. ALLOPURINOL. [Concomitant]
     Active Substance: ALLOPURINOL
     Dosage: 100 MG, QD
     Dates: start: 20031201

REACTIONS (4)
  - Cataract operation [Unknown]
  - Condition aggravated [Unknown]
  - Secretion discharge [Unknown]
  - Blindness [Unknown]

NARRATIVE: CASE EVENT DATE: 201605
